FAERS Safety Report 8178718-7 (Version None)
Quarter: 2012Q1

REPORT INFORMATION
  Report Type: 
  Country: None (occurrence: None)
  Receive Date: 20120301
  Receipt Date: 20120301
  Transmission Date: 20120608
  Serious: Yes (Other)
  Sender: FDA-Public Use
  Company Number: None

PATIENT
  Age: 84 Year
  Sex: Female
  Weight: 62 kg

DRUGS (1)
  1. SEROQUEL [Suspect]

REACTIONS (3)
  - DYSKINESIA [None]
  - DRUG HYPERSENSITIVITY [None]
  - TIC [None]
